FAERS Safety Report 5271675-2 (Version None)
Quarter: 2007Q1

REPORT INFORMATION
  Report Type: 
  Country: None (occurrence: None)
  Receive Date: 20070321
  Receipt Date: 20070309
  Transmission Date: 20070707
  Serious: Yes (Death, Hospitalization)
  Sender: FDA-Public Use
  Company Number: ES-PFIZER INC-2005113454

PATIENT
  Sex: Male
  Weight: 73 kg

DRUGS (2)
  1. SU-011,248 [Suspect]
     Indication: NON-SMALL CELL LUNG CANCER
     Route: 048
     Dates: start: 20050525, end: 20050620
  2. SU-011,248 [Suspect]
     Route: 048
     Dates: start: 20050718, end: 20050816

REACTIONS (1)
  - PNEUMOTHORAX [None]
